FAERS Safety Report 8199299-8 (Version None)
Quarter: 2012Q1

REPORT INFORMATION
  Report Type: 
  Country: None (occurrence: None)
  Receive Date: 20120309
  Receipt Date: 20120302
  Transmission Date: 20120608
  Serious: Yes (Other)
  Sender: FDA-Public Use
  Company Number: JP-VERTEX PHARMACEUTICALS INC.-AE-2012-003019

PATIENT
  Age: 66 Year
  Sex: Female

DRUGS (7)
  1. MAGMITT [Concomitant]
     Route: 048
  2. TELAVIC (TELAPREVIR) [Suspect]
     Indication: HEPATITIS C
     Route: 048
     Dates: start: 20120216, end: 20120227
  3. URSODIOL [Concomitant]
     Route: 048
  4. YODEL-S [Concomitant]
     Route: 048
  5. PEGINTERFERON [Concomitant]
     Indication: HEPATITIS C
     Route: 058
     Dates: start: 20120216
  6. RIBAVIRIN [Concomitant]
     Indication: HEPATITIS C
     Route: 048
     Dates: start: 20120216
  7. GLAKAY [Concomitant]
     Route: 048

REACTIONS (1)
  - URTICARIA [None]
